FAERS Safety Report 20310548 (Version 1)
Quarter: 2022Q1

REPORT INFORMATION
  Report Type: Report from Study
  Country: US (occurrence: None)
  Receive Date: 20220107
  Receipt Date: 20220107
  Transmission Date: 20220423
  Serious: Yes (Death)
  Sender: FDA-Public Use
  Company Number: 2022A008998

PATIENT
  Sex: Male

DRUGS (14)
  1. LYNPARZA [Suspect]
     Active Substance: OLAPARIB
     Indication: Prostate cancer
     Route: 048
     Dates: start: 20210813
  2. ABIRATERONE [Concomitant]
     Active Substance: ABIRATERONE
  3. ALLOPURINOL [Concomitant]
     Active Substance: ALLOPURINOL
  4. CALCIUM [Concomitant]
     Active Substance: CALCIUM
  5. CYCLOBENZAPRINE [Concomitant]
     Active Substance: CYCLOBENZAPRINE
  6. DEXAMETHASONE [Concomitant]
     Active Substance: DEXAMETHASONE
  7. FENTANYL [Concomitant]
     Active Substance: FENTANYL
  8. IBUPROFEN [Concomitant]
     Active Substance: IBUPROFEN
  9. METFORMIN [Concomitant]
     Active Substance: METFORMIN HYDROCHLORIDE
  10. VITAMINS [Concomitant]
     Active Substance: VITAMINS
  11. NORETHINDRONE [Concomitant]
     Active Substance: NORETHINDRONE
  12. OXYCODONE [Concomitant]
     Active Substance: OXYCODONE
  13. PREGABALIN [Concomitant]
     Active Substance: PREGABALIN
  14. TRAZODONE [Concomitant]
     Active Substance: TRAZODONE HYDROCHLORIDE

REACTIONS (1)
  - Death [Fatal]
